FAERS Safety Report 14819914 (Version 1)
Quarter: 2018Q2

REPORT INFORMATION
  Report Type: Spontaneous
  Country: GB (occurrence: GB)
  Receive Date: 20180427
  Receipt Date: 20180427
  Transmission Date: 20180711
  Serious: Yes (Disabling, Other)
  Sender: FDA-Public Use
  Company Number: GB-BRISTOL-MYERS SQUIBB COMPANY-BMS-2018-036724

PATIENT
  Age: 44 Year
  Sex: Male
  Weight: 65 kg

DRUGS (1)
  1. KENALOG [Suspect]
     Active Substance: TRIAMCINOLONE ACETONIDE
     Indication: OSTEOARTHRITIS
     Dosage: 80 MG, UNK (IN EACH KNEE)
     Route: 051

REACTIONS (10)
  - Panic attack [Not Recovered/Not Resolved]
  - Abdominal discomfort [Recovered/Resolved]
  - Tremor [Recovered/Resolved with Sequelae]
  - Mood swings [Not Recovered/Not Resolved]
  - Insomnia [Recovered/Resolved]
  - Anxiety [Not Recovered/Not Resolved]
  - Visual impairment [Recovered/Resolved]
  - Dizziness [Recovered/Resolved with Sequelae]
  - Depression [Not Recovered/Not Resolved]
  - Abnormal loss of weight [Recovered/Resolved]

NARRATIVE: CASE EVENT DATE: 20161214
